FAERS Safety Report 21652559 (Version 2)
Quarter: 2022Q4

REPORT INFORMATION
  Report Type: Spontaneous
  Country: PK (occurrence: PK)
  Receive Date: 20221128
  Receipt Date: 20221229
  Transmission Date: 20230113
  Serious: Yes (Death)
  Sender: FDA-Public Use
  Company Number: PK-PFIZER INC-PV202200057086

PATIENT
  Age: 38 Year
  Sex: Male

DRUGS (2)
  1. SUTENT [Suspect]
     Active Substance: SUNITINIB MALATE
     Indication: Metastatic renal cell carcinoma
     Dosage: 37.5 MG, 1X/DAY CONTINUOUSLY
     Route: 048
  2. SUTENT [Suspect]
     Active Substance: SUNITINIB MALATE
     Dosage: 37.5 MG
     Route: 048
     Dates: start: 20220908, end: 20221007

REACTIONS (3)
  - Death [Fatal]
  - Off label use [Unknown]
  - Product use issue [Unknown]

NARRATIVE: CASE EVENT DATE: 20221029
